FAERS Safety Report 23339321 (Version 1)
Quarter: 2023Q4

REPORT INFORMATION
  Report Type: Spontaneous
  Country: CZ (occurrence: CZ)
  Receive Date: 20231226
  Receipt Date: 20231226
  Transmission Date: 20240109
  Serious: Yes (Life-Threatening, Hospitalization, Other)
  Sender: FDA-Public Use
  Company Number: None

PATIENT
  Age: 68 Year
  Sex: Female
  Weight: 47 kg

DRUGS (20)
  1. OXALIPLATIN [Suspect]
     Active Substance: OXALIPLATIN
     Indication: Gastric cancer
     Dosage: 10 CYCLES ADMINISTERED?FOA : CONCENTRATION FOR SOLUTION FOR INFUSION?ROA: INTRAVENOUS (NOT OTHERWISE
     Dates: start: 20230822, end: 20231206
  2. AKYNZEO 300mg+0.5mg [Concomitant]
     Indication: Product used for unknown indication
     Dosage: WITH CHEMOTHERAPY?FOA : CAPSULE?ROUTE: ORAL
  3. ASKETON 50mg [Concomitant]
     Indication: Product used for unknown indication
     Dosage: 1-1-1?FOA: TABLET?ROA: ORAL
  4. METAMIZOLE 500mg [Concomitant]
     Indication: Product used for unknown indication
     Dosage: 1-1-1?FOA : TABLET?ROA: ORAL
  5. MONOPOST 50ug [Concomitant]
     Indication: Product used for unknown indication
     Dosage: 0-0-1?FOA : EYE DROPS?ROA: INTRAOCULAR
  6. FENTALIS 50ug/h [Concomitant]
     Indication: Product used for unknown indication
     Dosage: CHANGE EVERY 6 DAYS?FOA : PATCH?ROA: ORAL
  7. ASENTRA  100mg [Concomitant]
     Indication: Product used for unknown indication
     Dosage: 1-0-0?FOA: TABLET?ROA: ORAL
  8. PREGABALIN  75mg [Concomitant]
     Indication: Product used for unknown indication
     Dosage: 1-0-1?FOA : CAPSULE?ROA: ORAL
  9. BECLOMETHASONE DIPROPIONATE [Concomitant]
     Active Substance: BECLOMETHASONE DIPROPIONATE
     Indication: Product used for unknown indication
     Dosage: 1-0-0?FOA : PRESSURISED INHALATION, SOLUTION?ROA: RESPIRATORY (INHALATION)
  10. DUPHALAC 66,5% [Concomitant]
     Indication: Product used for unknown indication
     Dosage: 20-20-0 IN A CASE OF OBSTIPATION?FOA: ORAL SOLUTION?ROA: ORAL
  11. NIMESIL  100mg [Concomitant]
     Indication: Product used for unknown indication
     Dosage: 1-0-1?FOA: GRANULES FOR ORAL SOLUTION?ROA: ORAL
  12. CODEIN 30mg [Concomitant]
     Indication: Product used for unknown indication
     Dosage: 0-0-1?FOA: TABLET?ROA: ORAL
  13. KALNORMIN 1g [Concomitant]
     Indication: Product used for unknown indication
     Dosage: 1-0-0
  14. MAGNOSOLV 365mg [Concomitant]
     Indication: Product used for unknown indication
     Dosage: 1-0-1?FOA : ORAL SOLUTION?ROA: ORAL
  15. SALOFALK  500mg [Concomitant]
     Indication: Product used for unknown indication
     Dosage: 1-0-1?FOA : TABLET?ROA: ORAL
  16. FRAXIPARINE  0,4ml [Concomitant]
     Indication: Product used for unknown indication
     Dosage: FOA : SOLUTION FOR INJECTION?ROA: SUBCUTANEOUS
  17. DESLORATADINE [Concomitant]
     Active Substance: DESLORATADINE
     Indication: Product used for unknown indication
     Dosage: 1-0-0?FOA: TABLET?ROA: ORAL
  18. GRANEGIS 2mg [Concomitant]
     Indication: Product used for unknown indication
     Dosage: ONCE A DAY IN A CASE OF NAUSEA?FOA: TABLET?ROA: ORAL
  19. HELICID 20mg [Concomitant]
     Indication: Product used for unknown indication
     Dosage: 1-0-0?FOA : CAPSULE?ROA: ORAL
  20. NEUROL 1mg [Concomitant]
     Indication: Product used for unknown indication
     Dosage: 0-0-1?FOA : TABLET?ROA: ORAL

REACTIONS (6)
  - Foaming at mouth [Recovering/Resolving]
  - Dyspnoea [Recovering/Resolving]
  - Cardiopulmonary failure [Recovering/Resolving]
  - Altered state of consciousness [Recovering/Resolving]
  - Hypotension [Recovering/Resolving]
  - Anaphylactic reaction [Recovering/Resolving]

NARRATIVE: CASE EVENT DATE: 20231206
